FAERS Safety Report 4883025-1 (Version None)
Quarter: 2005Q4

REPORT INFORMATION
  Report Type: 
  Country: None (occurrence: None)
  Receive Date: 20051201
  Receipt Date: 20050831
  Transmission Date: 20060501
  Serious: No
  Sender: FDA-Public Use
  Company Number: 2005PV001765

PATIENT
  Age: 60 Year
  Sex: Female
  Weight: 78.4723 kg

DRUGS (11)
  1. BYETTA [Suspect]
     Indication: DIABETES MELLITUS NON-INSULIN-DEPENDENT
     Dosage: 5 MCG; BID; SC
     Route: 058
     Dates: start: 20050801
  2. AMARYL [Concomitant]
  3. LASIX [Concomitant]
  4. CARDIAZEM LA [Concomitant]
  5. ELAVIL [Concomitant]
  6. CARDURA [Concomitant]
  7. TOPROL [Concomitant]
  8. ZOLOFT [Concomitant]
  9. LIPITOR [Concomitant]
  10. CLONIDINE [Concomitant]
  11. MULTI-VITAMIN [Concomitant]

REACTIONS (3)
  - FATIGUE [None]
  - HYPERSOMNIA [None]
  - VOMITING [None]
